FAERS Safety Report 7293794-1 (Version None)
Quarter: 2011Q1

REPORT INFORMATION
  Report Type: 
  Country: None (occurrence: None)
  Receive Date: 20110202
  Receipt Date: 20110128
  Transmission Date: 20110831
  Serious: Yes (Life-Threatening, Other)
  Sender: FDA-Public Use
  Company Number: 2011SP001626

PATIENT
  Age: 37 Year
  Sex: Male

DRUGS (11)
  1. NORVIR [Concomitant]
  2. REYATAZ [Concomitant]
  3. IMODIUM [Concomitant]
  4. ZOLPIDEM TARTRATE [Concomitant]
  5. RIBAVIRIN [Suspect]
     Indication: HEPATITIS C
     Dosage: 600 MG; BID; PO
     Route: 048
     Dates: start: 20100211, end: 20110107
  6. SIPRALEXA /01588501/ [Concomitant]
  7. PEG-INTRON [Suspect]
     Indication: HEPATITIS C
     Dosage: 120 MCG; QW; PO
     Route: 048
     Dates: start: 20100211, end: 20110106
  8. EPIVIR [Concomitant]
  9. INVIRASE /01288701/ [Concomitant]
  10. PEGINTRON (PEGINTERFERON ALFA-2B /01543001/) [Suspect]
     Indication: HEPATITIS C
     Dosage: 800 MG;TID;PO
     Route: 048
     Dates: start: 20100211, end: 20110107
  11. XANAX [Concomitant]

REACTIONS (4)
  - PULMONARY EMBOLISM [None]
  - DEPRESSION [None]
  - DEEP VEIN THROMBOSIS [None]
  - SUICIDE ATTEMPT [None]
